FAERS Safety Report 7120106-6 (Version None)
Quarter: 2010Q4

REPORT INFORMATION
  Report Type: 
  Country: None (occurrence: None)
  Receive Date: 20101123
  Receipt Date: 20101117
  Transmission Date: 20110411
  Serious: Yes (Other)
  Sender: FDA-Public Use
  Company Number: US-US-EMD SERONO, INC.-233197J09USA

PATIENT
  Sex: Male
  Weight: 109 kg

DRUGS (14)
  1. REBIF [Suspect]
     Indication: MULTIPLE SCLEROSIS
     Route: 058
     Dates: start: 20071114
  2. REBIF [Suspect]
     Dates: start: 20080801
  3. TRICOR [Concomitant]
     Indication: BLOOD TRIGLYCERIDES INCREASED
  4. TRICOR [Concomitant]
     Indication: HYPERLIPIDAEMIA
  5. NIACIN [Concomitant]
     Indication: BLOOD CHOLESTEROL INCREASED
  6. AVANDIA [Concomitant]
     Indication: DIABETES MELLITUS
  7. ASPIRIN [Concomitant]
     Indication: ANTICOAGULANT THERAPY
  8. LASIX [Concomitant]
     Indication: DIURETIC THERAPY
  9. COUMADIN [Concomitant]
     Indication: ANTICOAGULANT THERAPY
  10. LIPITOR [Concomitant]
     Indication: BLOOD CHOLESTEROL INCREASED
  11. LIPITOR [Concomitant]
     Indication: HYPERLIPIDAEMIA
  12. RANITIDINE [Concomitant]
     Indication: DYSPEPSIA
  13. CLARITIN [Concomitant]
     Indication: SINUS DISORDER
  14. COREG [Concomitant]
     Indication: HYPERTENSION

REACTIONS (2)
  - CORONARY ARTERY OCCLUSION [None]
  - DYSPEPSIA [None]
